FAERS Safety Report 6330019-5 (Version None)
Quarter: 2009Q3

REPORT INFORMATION
  Report Type: 
  Country: None (occurrence: None)
  Receive Date: 20090825
  Receipt Date: 20090812
  Transmission Date: 20100115
  Serious: Yes (Other)
  Sender: FDA-Public Use
  Company Number: 8050380

PATIENT
  Age: 36 Year
  Sex: Male
  Weight: 86.1 kg

DRUGS (4)
  1. KEPPRA [Suspect]
     Indication: GRAND MAL CONVULSION
     Dosage: 1000 MG /D PO
     Route: 048
     Dates: start: 20060101, end: 20090701
  2. KEPPRA [Suspect]
     Indication: GRAND MAL CONVULSION
     Dosage: 1000 MG 2/D PO
     Route: 048
     Dates: start: 20090801
  3. KEPPRA [Suspect]
     Indication: CONVULSION
     Dosage: 1000 MG /D PO
     Route: 048
     Dates: start: 20090701, end: 20090801
  4. KLONOPIN [Concomitant]

REACTIONS (2)
  - CONDITION AGGRAVATED [None]
  - PARTIAL SEIZURES [None]
